FAERS Safety Report 4347770-9 (Version None)
Quarter: 2004Q2

REPORT INFORMATION
  Report Type: 
  Country: None (occurrence: None)
  Receive Date: 20040422
  Receipt Date: 20040331
  Transmission Date: 20050107
  Serious: Yes (Other)
  Sender: FDA-Public Use
  Company Number: USA040463739

PATIENT
  Sex: Female

DRUGS (5)
  1. HUMULIN 70/30 [Suspect]
     Indication: DIABETES MELLITUS NON-INSULIN-DEPENDENT
     Dosage: 85 U/2 DAY
  2. NORVASC [Concomitant]
  3. LIPITOR [Concomitant]
  4. ZAROXOLYN [Concomitant]
  5. PLAVIX [Concomitant]

REACTIONS (2)
  - CARCINOMA [None]
  - PHARMACEUTICAL PRODUCT COMPLAINT [None]
